FAERS Safety Report 5194225-8 (Version None)
Quarter: 2006Q4

REPORT INFORMATION
  Report Type: 
  Country: None (occurrence: None)
  Receive Date: 20061228
  Receipt Date: 20061218
  Transmission Date: 20070319
  Serious: Yes (Hospitalization)
  Sender: FDA-Public Use
  Company Number: FR-PFIZER INC-2006154678

PATIENT
  Age: 83 Year
  Sex: Female

DRUGS (5)
  1. XALATAN [Suspect]
     Indication: GLAUCOMA
     Dosage: TEXT:1 G-FREQ:FREQUENCY: DAILY
     Route: 031
  2. CARTEOLOL HYDROCHLORIDE [Suspect]
     Indication: GLAUCOMA
     Dosage: TEXT:1 G-FREQ:FREQUENCY: DAILY
  3. VENLAFAXINE HCL [Suspect]
     Route: 048
     Dates: start: 20060701, end: 20060803
  4. LOSARTAN POTASSIUM AND HYDROCHLOROTHIAZIDE [Suspect]
     Indication: HYPERTENSION
     Dosage: TEXT:1 DF-FREQ:FREQUENCY: DAILY
     Route: 048
  5. CELIPROLOL [Suspect]
     Indication: HYPERTENSION
     Dosage: DAILY DOSE:200MG-FREQ:FREQUENCY: DAILY
     Route: 048

REACTIONS (2)
  - HAEMATOMA [None]
  - THROMBOCYTOPENIA [None]
